FAERS Safety Report 9357452 (Version 1)
Quarter: 2013Q2

REPORT INFORMATION
  Report Type: Spontaneous
  Country: FR (occurrence: FR)
  Receive Date: 20130620
  Receipt Date: 20130620
  Transmission Date: 20140414
  Serious: Yes (Hospitalization)
  Sender: FDA-Public Use
  Company Number: PHHY2013FR061191

PATIENT
  Age: 65 Year
  Sex: Female

DRUGS (3)
  1. TEGRETOL [Suspect]
     Indication: EPILEPSY
     Dosage: 200 MG, QD
     Route: 048
  2. OMEPRAZOLE [Suspect]
     Dosage: 1 DF, QD
     Route: 048
     Dates: start: 20130418, end: 20130418
  3. TUSSIPAX [Suspect]
     Dosage: 1 DF, QD
     Route: 048
     Dates: start: 20130418, end: 20130418

REACTIONS (3)
  - Hyperlipasaemia [Recovered/Resolved]
  - Leukopenia [Recovered/Resolved]
  - Pancreatitis [None]
